FAERS Safety Report 8175857-1 (Version None)
Quarter: 2012Q1

REPORT INFORMATION
  Report Type: 
  Country: None (occurrence: None)
  Receive Date: 20120228
  Receipt Date: 20120224
  Transmission Date: 20120608
  Serious: Yes (Hospitalization)
  Sender: FDA-Public Use
  Company Number: 2012SP010357

PATIENT
  Sex: Female

DRUGS (3)
  1. LIPITOR [Concomitant]
  2. CLARITIN [Suspect]
     Indication: PRURITUS
     Dosage: 10 MG;QD;PO
     Route: 048
     Dates: start: 20120101, end: 20120223
  3. HALCION [Concomitant]

REACTIONS (2)
  - HEPATIC FUNCTION ABNORMAL [None]
  - ACUTE ABDOMEN [None]
